FAERS Safety Report 21008735 (Version 2)
Quarter: 2022Q3

REPORT INFORMATION
  Report Type: Spontaneous
  Country: JP (occurrence: JP)
  Receive Date: 20220627
  Receipt Date: 20220711
  Transmission Date: 20221026
  Serious: Yes (Hospitalization, Other)
  Sender: FDA-Public Use
  Company Number: JP-MSD-2206JPN002534J

PATIENT
  Age: 64 Year
  Sex: Female

DRUGS (1)
  1. KEYTRUDA [Suspect]
     Active Substance: PEMBROLIZUMAB
     Indication: Nasal sinus cancer
     Dosage: UNK
     Route: 041

REACTIONS (4)
  - Cytotoxic lesions of corpus callosum [Recovering/Resolving]
  - Encephalopathy [Recovering/Resolving]
  - Encephalitis [Recovering/Resolving]
  - Thyroiditis [Unknown]
